FAERS Safety Report 7447115-1 (Version None)
Quarter: 2011Q2

REPORT INFORMATION
  Report Type: 
  Country: None (occurrence: None)
  Receive Date: 20110429
  Receipt Date: 20110418
  Transmission Date: 20111010
  Serious: Yes (Other)
  Sender: FDA-Public Use
  Company Number: US-ELI_LILLY_AND_COMPANY-US201104004994

PATIENT
  Sex: Female

DRUGS (3)
  1. DEPAKOTE [Concomitant]
  2. FORTEO [Suspect]
     Indication: OSTEOPOROSIS
     Dosage: 20 UG, QD
     Dates: start: 20110404
  3. DILANTIN [Concomitant]

REACTIONS (15)
  - FEELING COLD [None]
  - NAUSEA [None]
  - HYPOPHAGIA [None]
  - DYSPNOEA [None]
  - ARTHRALGIA [None]
  - DIARRHOEA [None]
  - DIZZINESS [None]
  - INSOMNIA [None]
  - HEADACHE [None]
  - PETIT MAL EPILEPSY [None]
  - FEELING ABNORMAL [None]
  - INFREQUENT BOWEL MOVEMENTS [None]
  - RECTAL TENESMUS [None]
  - PAIN IN EXTREMITY [None]
  - ANXIETY [None]
